FAERS Safety Report 4625991-5 (Version None)
Quarter: 2005Q2

REPORT INFORMATION
  Report Type: 
  Country: None (occurrence: None)
  Receive Date: 20050404
  Receipt Date: 20050322
  Transmission Date: 20051028
  Serious: Yes (Death, Other)
  Sender: FDA-Public Use
  Company Number: US-JNJFOC-20040908727

PATIENT
  Sex: Female
  Weight: 90.27 kg

DRUGS (13)
  1. TOPAMAX [Suspect]
     Route: 049
  2. TOPAMAX [Suspect]
     Indication: MIGRAINE PROPHYLAXIS
     Route: 049
  3. TOPAMAX [Suspect]
     Route: 049
  4. DEPAKOTE ER [Concomitant]
     Route: 065
  5. DEPAKOTE ER [Concomitant]
     Indication: DRUG USE FOR UNKNOWN INDICATION
     Route: 065
  6. FLEXERIL [Concomitant]
     Route: 049
  7. COZAAR [Concomitant]
     Route: 049
  8. PHENERGAN SUPPOSITORY [Concomitant]
     Route: 054
  9. PROPRANOLOL [Concomitant]
     Route: 049
  10. LAMICTAL [Concomitant]
     Route: 065
  11. LAMICTAL [Concomitant]
     Route: 065
  12. LAMICTAL [Concomitant]
     Route: 065
  13. LAMICTAL [Concomitant]
     Indication: DRUG USE FOR UNKNOWN INDICATION
     Route: 065

REACTIONS (3)
  - CARDIAC FAILURE [None]
  - RASH [None]
  - RENAL FAILURE [None]
